FAERS Safety Report 5281673-0 (Version None)
Quarter: 2007Q1

REPORT INFORMATION
  Report Type: 
  Country: None (occurrence: None)
  Receive Date: 20070326
  Receipt Date: 20070308
  Transmission Date: 20070707
  Serious: Yes (Hospitalization)
  Sender: FDA-Public Use
  Company Number: 8022655

PATIENT
  Age: 68 Year
  Sex: Male

DRUGS (8)
  1. KEPPRA [Suspect]
     Indication: EPILEPSY
     Dosage: 1500 MG /D PO
     Route: 048
     Dates: start: 20070118, end: 20070121
  2. SOLU-MEDROL [Concomitant]
  3. AXEPIM [Concomitant]
  4. BIONOLYTE [Concomitant]
  5. DEROXAT [Concomitant]
  6. OMEPRAZOLE [Concomitant]
  7. TEMODAL [Concomitant]
  8. LOVENOX [Suspect]

REACTIONS (4)
  - HAEMATURIA [None]
  - HEPARIN-INDUCED THROMBOCYTOPENIA [None]
  - HYPOTHERMIA [None]
  - PANCYTOPENIA [None]
